FAERS Safety Report 9516848 (Version 2)
Quarter: 2013Q2

REPORT INFORMATION
  Report Type: Spontaneous
  Country: FR (occurrence: None)
  Receive Date: 20130419
  Receipt Date: 20130612
  Transmission Date: 20140414
  Serious: Yes (Hospitalization)
  Sender: FDA-Public Use
  Company Number: 221104

PATIENT
  Age: 53 Year
  Sex: Female
  Weight: 62 kg

DRUGS (2)
  1. INNOHEP (TINZAPARIN SODIUM) [Suspect]
     Indication: THROMBOSIS PROPHYLAXIS
     Route: 058
     Dates: start: 20130324
  2. INNOHEP (TINZAPARIN SODIUM) [Suspect]
     Route: 058
     Dates: start: 20130324

REACTIONS (8)
  - Injection site pain [None]
  - Local swelling [None]
  - Muscle abscess [None]
  - General physical health deterioration [None]
  - Abscess limb [None]
  - Fasciitis [None]
  - Pelvic abscess [None]
  - Purulence [None]
